FAERS Safety Report 9295165 (Version 3)
Quarter: 2013Q4

REPORT INFORMATION
  Report Type: Spontaneous
  Country: US (occurrence: None)
  Receive Date: 20121227
  Receipt Date: 20131226
  Transmission Date: 20140711
  Serious: Yes (Other)
  Sender: FDA-Public Use
  Company Number: PHEH2012US021879

PATIENT
  Age: 52 Year
  Sex: Female
  Weight: 57.1 kg

DRUGS (2)
  1. AFINITOR (RAD) [Suspect]
     Indication: BREAST CANCER
     Route: 048
     Dates: start: 201209, end: 201211
  2. FEMARA (LETROZOLE) [Concomitant]

REACTIONS (3)
  - Stomatitis [None]
  - Mucosal inflammation [None]
  - Hypophagia [None]
